FAERS Safety Report 4596350-9 (Version None)
Quarter: 2005Q1

REPORT INFORMATION
  Report Type: 
  Country: None (occurrence: None)
  Receive Date: 20050225
  Receipt Date: 20050216
  Transmission Date: 20050727
  Serious: Yes (Life-Threatening)
  Sender: FDA-Public Use
  Company Number: 2005AP01208

PATIENT
  Sex: Male

DRUGS (1)
  1. XYLOCAINE [Suspect]
     Indication: LOCAL ANAESTHESIA
     Dosage: 10 ML
     Dates: start: 20031001, end: 20031001

REACTIONS (2)
  - ANAESTHETIC COMPLICATION VASCULAR [None]
  - SHOCK [None]
